FAERS Safety Report 8160025-X (Version None)
Quarter: 2012Q1

REPORT INFORMATION
  Report Type: 
  Country: None (occurrence: None)
  Receive Date: 20120223
  Receipt Date: 20120214
  Transmission Date: 20120608
  Serious: Yes (Hospitalization)
  Sender: FDA-Public Use
  Company Number: FR-GLAXOSMITHKLINE-B0781402A

PATIENT
  Age: 69 Year
  Sex: Female

DRUGS (2)
  1. TAXOL [Concomitant]
  2. HYCAMTIN [Suspect]
     Indication: OVARIAN CANCER
     Route: 042
     Dates: start: 20110512, end: 20110519

REACTIONS (4)
  - AGRANULOCYTOSIS [None]
  - PYREXIA [None]
  - THROMBOCYTOPENIA [None]
  - DIARRHOEA [None]
